FAERS Safety Report 5397469-5 (Version None)
Quarter: 2007Q3

REPORT INFORMATION
  Report Type: 
  Country: None (occurrence: None)
  Receive Date: 20070723
  Receipt Date: 20070723
  Transmission Date: 20080115
  Serious: Yes (Other)
  Sender: FDA-Public Use
  Company Number: None

PATIENT
  Age: 28 Year
  Sex: Male
  Weight: 71.2147 kg

DRUGS (3)
  1. TRAMADOL HCL [Suspect]
     Indication: INTERVERTEBRAL DISC DISORDER
     Dosage: 50MG Q4-6H PO
     Route: 048
     Dates: start: 20070629, end: 20070701
  2. TRAMADOL HCL [Suspect]
     Indication: INTERVERTEBRAL DISC DISORDER
     Dosage: 50MG Q4-6H PO
     Route: 048
     Dates: start: 20070612
  3. VICODIN [Concomitant]

REACTIONS (3)
  - DYSURIA [None]
  - RESIDUAL URINE [None]
  - URINARY HESITATION [None]
